FAERS Safety Report 4335408-6 (Version None)
Quarter: 2004Q2

REPORT INFORMATION
  Report Type: 
  Country: None (occurrence: None)
  Receive Date: 20040408
  Receipt Date: 20040408
  Transmission Date: 20050107
  Serious: Yes (Hospitalization)
  Sender: FDA-Public Use
  Company Number: None

PATIENT
  Age: 69 Year
  Sex: Male
  Weight: 90.7 kg

DRUGS (1)
  1. MOTRIN [Suspect]
     Indication: GOUT
     Dosage: 800MG, 600QBHPR ORAL
     Route: 048
     Dates: start: 20040223, end: 20040302

REACTIONS (1)
  - GASTROINTESTINAL HAEMORRHAGE [None]
